FAERS Safety Report 4354770-1 (Version None)
Quarter: 2004Q2

REPORT INFORMATION
  Report Type: 
  Country: None (occurrence: None)
  Receive Date: 20040507
  Receipt Date: 20040409
  Transmission Date: 20050107
  Serious: Yes (Death, Other)
  Sender: FDA-Public Use
  Company Number: US-BRISTOL-MYERS SQUIBB COMPANY-12577623

PATIENT
  Age: 40 Year
  Sex: Male

DRUGS (13)
  1. CYCLOPHOSPHAMIDE [Interacting]
     Indication: NON-HODGKIN'S LYMPHOMA STAGE IV
     Dosage: 800 MG/M2 EVERY 12 HOURS FOR A TOTAL OF 8 DOSES.
  2. CARMUSTINE [Suspect]
     Indication: NON-HODGKIN'S LYMPHOMA STAGE IV
     Dosage: A TOTAL OF 4 DOSES
  3. CISPLATIN [Suspect]
     Indication: NON-HODGKIN'S LYMPHOMA STAGE IV
  4. DOXORUBICIN HCL [Suspect]
     Indication: NON-HODGKIN'S LYMPHOMA STAGE IV
  5. ETOPOSIDE [Suspect]
     Indication: NON-HODGKIN'S LYMPHOMA STAGE IV
     Dosage: EVERY 12 HOURS FOR A TOTAL OF 8 DOSES
  6. METHYLPREDNISOLONE [Suspect]
     Indication: NON-HODGKIN'S LYMPHOMA STAGE IV
  7. PENTOSTATIN [Interacting]
     Indication: NON-HODGKIN'S LYMPHOMA STAGE IV
     Dosage: DURATION OF INFUSION -4 HOURS ON DAY 3
     Route: 042
  8. VINCRISTINE [Suspect]
     Indication: NON-HODGKIN'S LYMPHOMA STAGE IV
  9. PREDNISONE [Suspect]
     Indication: NON-HODGKIN'S LYMPHOMA STAGE IV
  10. CYTARABINE [Suspect]
     Indication: NON-HODGKIN'S LYMPHOMA STAGE IV
  11. DEXAMETHASONE [Concomitant]
     Indication: PREMEDICATION
  12. ONDANSETRON HCL [Concomitant]
     Indication: PREMEDICATION
  13. CYCLOSPORINE [Concomitant]
     Dosage: 10 MG/KG FOR FIRST 24 HOURS THEN 4 MG/KG MAINTENANCE DOSE
     Route: 042

REACTIONS (6)
  - CONFUSIONAL STATE [None]
  - DRUG INTERACTION [None]
  - HYPOTENSION [None]
  - HYPOTHERMIA [None]
  - RESPIRATORY DISTRESS [None]
  - VENTRICULAR FIBRILLATION [None]
